FAERS Safety Report 15671557 (Version 1)
Quarter: 2018Q4

REPORT INFORMATION
  Report Type: Report from Study
  Country: US (occurrence: US)
  Receive Date: 20181129
  Receipt Date: 20181129
  Transmission Date: 20190205
  Serious: No
  Sender: FDA-Public Use
  Company Number: US-TESARO-2018-TSO0749-US

PATIENT
  Sex: Female

DRUGS (3)
  1. NEXIUM [Concomitant]
     Active Substance: ESOMEPRAZOLE MAGNESIUM
     Dosage: 80 MG, QD (DAILY)
  2. ZEJULA [Suspect]
     Active Substance: NIRAPARIB
     Indication: OVARIAN CANCER
     Dosage: 100 MG, QPM WITHOUT FOOD, 1 CAPSULE BY MOUTH ONCE DAILY
     Route: 048
     Dates: start: 20171128
  3. NEXIUM [Concomitant]
     Active Substance: ESOMEPRAZOLE MAGNESIUM
     Indication: GASTROOESOPHAGEAL REFLUX DISEASE
     Dosage: 80 MG, QD (DAILY)

REACTIONS (4)
  - Gastric pH decreased [Not Recovered/Not Resolved]
  - Product use complaint [Unknown]
  - Gastrooesophageal reflux disease [Recovering/Resolving]
  - Cough [Recovering/Resolving]
